FAERS Safety Report 8183209-3 (Version None)
Quarter: 2012Q1

REPORT INFORMATION
  Report Type: 
  Country: None (occurrence: None)
  Receive Date: 20120305
  Receipt Date: 20120227
  Transmission Date: 20120608
  Serious: Yes (Death, Hospitalization, Other)
  Sender: FDA-Public Use
  Company Number: US-ASTELLAS-2012US001268

PATIENT
  Sex: Female

DRUGS (2)
  1. TARCEVA [Suspect]
     Indication: PRODUCT USED FOR UNKNOWN INDICATION
     Dosage: UNK
     Route: 048
  2. AVASTIN [Suspect]
     Indication: PRODUCT USED FOR UNKNOWN INDICATION
     Dosage: UNK
     Route: 065

REACTIONS (9)
  - DEATH [None]
  - ASTHENIA [None]
  - HYPOPHAGIA [None]
  - DISEASE PROGRESSION [None]
  - NAUSEA [None]
  - FATIGUE [None]
  - MALIGNANT PLEURAL EFFUSION [None]
  - HOSPITALISATION [None]
  - DYSPNOEA [None]
